FAERS Safety Report 8544681-X (Version None)
Quarter: 2012Q3

REPORT INFORMATION
  Report Type: 
  Country: None (occurrence: None)
  Receive Date: 20120727
  Receipt Date: 20120718
  Transmission Date: 20120928
  Serious: Yes (Other)
  Sender: FDA-Public Use
  Company Number: US-BRISTOL-MYERS SQUIBB COMPANY-16443038

PATIENT
  Age: 59 Year
  Sex: Female

DRUGS (2)
  1. ORENCIA [Suspect]
     Indication: RHEUMATOID ARTHRITIS
     Dosage: LAST INF 13FEB2012 ALAO TAKEN VIA SC INTERRUPT ON APR2012 AND MAY2012 RESTART ON JUN12.
     Route: 042
     Dates: start: 20110801
  2. PREDNISONE [Suspect]

REACTIONS (5)
  - GLAUCOMA [None]
  - DRUG INEFFECTIVE [None]
  - PAIN IN EXTREMITY [None]
  - CATARACT [None]
  - OEDEMA PERIPHERAL [None]
